FAERS Safety Report 16965503 (Version 2)
Quarter: 2019Q4

REPORT INFORMATION
  Report Type: Spontaneous
  Country: JP (occurrence: JP)
  Receive Date: 20191028
  Receipt Date: 20191115
  Transmission Date: 20200122
  Serious: Yes (Other)
  Sender: FDA-Public Use
  Company Number: JP-REGENERON PHARMACEUTICALS, INC.-2019-61366

PATIENT

DRUGS (3)
  1. EYLEA [Suspect]
     Active Substance: AFLIBERCEPT
     Dosage: LEFT EYE, ONCE
     Route: 031
  2. EYLEA [Suspect]
     Active Substance: AFLIBERCEPT
     Indication: AGE-RELATED MACULAR DEGENERATION
     Dosage: UNK UNK, ONCE
     Route: 031
  3. EYLEA [Suspect]
     Active Substance: AFLIBERCEPT
     Dosage: LEFT EYE, ONCE
     Route: 031

REACTIONS (2)
  - Vitreous haemorrhage [Recovered/Resolved]
  - Vitrectomy [Unknown]
